FAERS Safety Report 21293736 (Version 1)
Quarter: 2022Q3

REPORT INFORMATION
  Report Type: Spontaneous
  Country: UY (occurrence: UY)
  Receive Date: 20220905
  Receipt Date: 20220905
  Transmission Date: 20221027
  Serious: Yes (Other)
  Sender: FDA-Public Use
  Company Number: UY-BAYER-2022A122430

PATIENT
  Age: 72 Year
  Sex: Female

DRUGS (1)
  1. EYLEA [Suspect]
     Active Substance: AFLIBERCEPT
     Indication: Product used for unknown indication
     Dosage: FORMULATION: SOLUTION FOR INJECTION, STRENGTH: 40MG/ML

REACTIONS (2)
  - Hip arthroplasty [Recovering/Resolving]
  - Product prescribing issue [Unknown]
